FAERS Safety Report 5841907-8 (Version None)
Quarter: 2008Q3

REPORT INFORMATION
  Report Type: 
  Country: None (occurrence: None)
  Receive Date: 20080811
  Receipt Date: 20080811
  Transmission Date: 20090109
  Serious: No
  Sender: FDA-Public Use
  Company Number: None

PATIENT

DRUGS (2)
  1. DURAGESIC-100 [Suspect]
     Indication: FIBROMYALGIA
     Dosage: 100 EVERY 3 DAYS TRANSDERMAL
     Route: 062
     Dates: start: 20070901, end: 20080809
  2. DURAGESIC-100 [Suspect]
     Indication: PAIN
     Dosage: 100 EVERY 3 DAYS TRANSDERMAL
     Route: 062
     Dates: start: 20070901, end: 20080809

REACTIONS (2)
  - DRUG EFFECT DECREASED [None]
  - THERAPEUTIC RESPONSE UNEXPECTED WITH DRUG SUBSTITUTION [None]
